FAERS Safety Report 9501423 (Version 2)
Quarter: 2013Q4

REPORT INFORMATION
  Report Type: Spontaneous
  Country: US (occurrence: US)
  Receive Date: 20130905
  Receipt Date: 20131104
  Transmission Date: 20140711
  Serious: Yes (Disabling)
  Sender: FDA-Public Use
  Company Number: US-GLAXOSMITHKLINE-A1039684A

PATIENT
  Age: 67 Year
  Sex: Male
  Weight: 63.6 kg

DRUGS (2)
  1. VOTRIENT [Suspect]
     Indication: RENAL CELL CARCINOMA
     Dosage: 800MG PER DAY
     Route: 048
     Dates: start: 20130827
  2. NO CONCURRENT MEDICATION [Concomitant]

REACTIONS (2)
  - Dysphagia [Recovering/Resolving]
  - Eating disorder [Recovering/Resolving]
